FAERS Safety Report 22315124 (Version 7)
Quarter: 2024Q2

REPORT INFORMATION
  Report Type: Report from Study
  Country: US (occurrence: US)
  Receive Date: 20230512
  Receipt Date: 20240419
  Transmission Date: 20240716
  Serious: Yes (Life-Threatening, Other)
  Sender: FDA-Public Use
  Company Number: US-INCYTE CORPORATION-2023IN003395

PATIENT

DRUGS (16)
  1. JAKAFI [Suspect]
     Active Substance: RUXOLITINIB
     Indication: Polycythaemia vera
     Dosage: 5 MILLIGRAM, BID
     Route: 048
     Dates: start: 20230330
  2. JAKAFI [Suspect]
     Active Substance: RUXOLITINIB
     Dosage: 10 MILLIGRAM, BID
     Route: 048
     Dates: start: 20230330
  3. JAKAFI [Suspect]
     Active Substance: RUXOLITINIB
     Dosage: 10 MILLIGRAM, BID
     Route: 048
     Dates: start: 20230414
  4. JAKAFI [Suspect]
     Active Substance: RUXOLITINIB
     Dosage: 10 MILLIGRAM, BID
     Route: 065
  5. JAKAFI [Suspect]
     Active Substance: RUXOLITINIB
     Dosage: 10 MILLIGRAM, BID
     Route: 065
  6. JAKAFI [Suspect]
     Active Substance: RUXOLITINIB
     Dosage: 15 MILLIGRAM, BID (1X10MG TABLETS ALONG WITH 1X5MG TABLET)
     Route: 065
     Dates: start: 20230602
  7. JAKAFI [Suspect]
     Active Substance: RUXOLITINIB
     Dosage: 15 MILLIGRAM, TWICE DAILY
     Route: 065
     Dates: start: 20230608
  8. JAKAFI [Suspect]
     Active Substance: RUXOLITINIB
     Dosage: 10MG IN THE MORNING, 15MG IN THE EVENING
     Route: 048
     Dates: start: 20230617
  9. JAKAFI [Suspect]
     Active Substance: RUXOLITINIB
     Dosage: 10MG IN THE MORNING, 15MG IN THE EVENING
     Route: 048
     Dates: start: 20230617
  10. JAKAFI [Suspect]
     Active Substance: RUXOLITINIB
     Dosage: 10 MILLIGRAM, BID
     Route: 065
     Dates: start: 202303
  11. JAKAFI [Suspect]
     Active Substance: RUXOLITINIB
     Dosage: TITRATED BACK DOWN FROM 15MG
     Route: 065
  12. JAKAFI [Suspect]
     Active Substance: RUXOLITINIB
     Dosage: UNK
     Route: 065
  13. VITAMIN B12 [Suspect]
     Active Substance: CYANOCOBALAMIN
     Dosage: UNK
     Route: 065
     Dates: end: 2023
  14. ESTRADIOL [Concomitant]
     Active Substance: ESTRADIOL
     Indication: Product used for unknown indication
     Dosage: 1 MILLIGRAM
     Route: 065
  15. ASPIRIN [Concomitant]
     Active Substance: ASPIRIN
     Indication: Product used for unknown indication
     Dosage: 81 MILLIGRAM, ONE EVERY OTHER DAY
     Route: 065
  16. SUMATRIPTAN [Concomitant]
     Active Substance: SUMATRIPTAN
     Indication: Migraine
     Route: 065

REACTIONS (35)
  - Platelet count increased [Recovering/Resolving]
  - Red blood cell count increased [Recovering/Resolving]
  - Respiratory moniliasis [Unknown]
  - Choking [Unknown]
  - Bradycardia [Unknown]
  - Device physical property issue [Unknown]
  - Tooth infection [Unknown]
  - Pyrexia [Unknown]
  - Eye infection [Unknown]
  - Haematocrit increased [Unknown]
  - Acne [Unknown]
  - Hyperphagia [Unknown]
  - Oral candidiasis [Unknown]
  - Therapeutic response unexpected [Unknown]
  - Intentional product use issue [Unknown]
  - Muscle spasms [Unknown]
  - Headache [Not Recovered/Not Resolved]
  - Platelet count decreased [Unknown]
  - Weight increased [Not Recovered/Not Resolved]
  - Constipation [Unknown]
  - Blood cholesterol increased [Recovering/Resolving]
  - Herpes zoster [Unknown]
  - Tachycardia [Unknown]
  - Insomnia [Not Recovered/Not Resolved]
  - Pelvic girdle pain [Unknown]
  - Dysgeusia [Unknown]
  - Pain [Not Recovered/Not Resolved]
  - Vitamin B12 increased [Not Recovered/Not Resolved]
  - Cardiac disorder [Unknown]
  - Bradyarrhythmia [Unknown]
  - Ventricular extrasystoles [Unknown]
  - Stress [Unknown]
  - Apathy [Unknown]
  - Asthenia [Recovering/Resolving]
  - Somnolence [Not Recovered/Not Resolved]

NARRATIVE: CASE EVENT DATE: 20230330
